FAERS Safety Report 5286632-X (Version None)
Quarter: 2007Q2

REPORT INFORMATION
  Report Type: 
  Country: None (occurrence: None)
  Receive Date: 20070404
  Receipt Date: 20070403
  Transmission Date: 20071010
  Serious: Yes (Life-Threatening)
  Sender: FDA-Public Use
  Company Number: JP-JPN-A200701294

PATIENT
  Age: 59 Year
  Sex: Male
  Weight: 69 kg

DRUGS (6)
  1. MODACIN [Suspect]
     Indication: PNEUMONIA
     Dosage: 2G TWICE PER DAY
     Route: 042
     Dates: start: 20070322, end: 20070322
  2. SAXIZON [Concomitant]
     Indication: ASTHMA
     Dosage: 360MG PER DAY
     Route: 042
     Dates: start: 20070322, end: 20070322
  3. SOLU-MEDROL [Concomitant]
     Indication: ASTHMA
     Dosage: 125MG PER DAY
     Route: 042
     Dates: start: 20070322, end: 20070322
  4. NEOPHYLLIN INJECTION [Concomitant]
     Indication: ASTHMA
     Dosage: 500MG PER DAY
     Route: 042
     Dates: start: 20070322
  5. ISOTONIC SODIUM CHLORIDE [Concomitant]
  6. AMINOPHYLLINE [Concomitant]

REACTIONS (7)
  - ANAPHYLACTIC SHOCK [None]
  - ASTHMA [None]
  - BLOOD PRESSURE DECREASED [None]
  - DYSPNOEA [None]
  - FACE OEDEMA [None]
  - HYPERHIDROSIS [None]
  - WHEEZING [None]
